FAERS Safety Report 8216858-4 (Version None)
Quarter: 2012Q1

REPORT INFORMATION
  Report Type: 
  Country: None (occurrence: None)
  Receive Date: 20120316
  Receipt Date: 20120307
  Transmission Date: 20120608
  Serious: Yes (Other)
  Sender: FDA-Public Use
  Company Number: US-ASTRAZENECA-2012SE12134

PATIENT
  Age: 44 Year
  Sex: Male
  Weight: 89.8 kg

DRUGS (8)
  1. TOPROL-XL [Suspect]
     Route: 048
  2. PLAVIX [Concomitant]
  3. LISINOPRIL [Suspect]
     Route: 048
  4. FISH OIL [Concomitant]
  5. ASPIRIN [Concomitant]
  6. HYDROCHLOROTHIAZIDE [Concomitant]
  7. CRESTOR [Suspect]
     Route: 048
  8. NEXIUM [Suspect]
     Route: 048

REACTIONS (10)
  - HYPERCHOLESTEROLAEMIA [None]
  - CEREBROVASCULAR INSUFFICIENCY [None]
  - TOBACCO ABUSE [None]
  - HYPERTENSION [None]
  - ASTHMA [None]
  - GASTROOESOPHAGEAL REFLUX DISEASE [None]
  - DRUG DOSE OMISSION [None]
  - CORONARY ARTERY OCCLUSION [None]
  - CORONARY ARTERY DISEASE [None]
  - INAPPROPRIATE SCHEDULE OF DRUG ADMINISTRATION [None]
